FAERS Safety Report 7451416 (Version 2)
Quarter: 2021Q1

REPORT INFORMATION
  Report Type: Spontaneous
  Country: CA (occurrence: CA)
  Receive Date: 20100701
  Receipt Date: 20210202
  Transmission Date: 20210420
  Serious: Yes (Hospitalization, Other)
  Sender: FDA-Public Use
  Company Number: CA-PFIZER INC-2010077802

PATIENT
  Age: 42 Year
  Sex: Female

DRUGS (1)
  1. PHENYTOIN. [Suspect]
     Active Substance: PHENYTOIN
     Dosage: 3600 MG, UNK
     Route: 048

REACTIONS (2)
  - Overdose [Recovering/Resolving]
  - Stupor [Recovering/Resolving]
